FAERS Safety Report 8008463-X (Version None)
Quarter: 2011Q4

REPORT INFORMATION
  Report Type: 
  Country: None (occurrence: None)
  Receive Date: 20111227
  Receipt Date: 20111216
  Transmission Date: 20120403
  Serious: Yes (Hospitalization)
  Sender: FDA-Public Use
  Company Number: US-BAYER-2011-046335

PATIENT
  Age: 17 Year
  Sex: Female
  Weight: 146.49 kg

DRUGS (6)
  1. ALBUTEROL [Concomitant]
     Indication: ASTHMA
     Dosage: 90 UNK, UNK
     Dates: start: 20030101, end: 20060101
  2. YASMIN [Suspect]
     Indication: CONTRACEPTION
     Dosage: UNK
     Dates: start: 20050806, end: 20060917
  3. ADVAIR DISKUS 100/50 [Concomitant]
     Indication: ASTHMA
     Dosage: UNK
     Dates: start: 20030101, end: 20070101
  4. NAPROXEN SODIUM W/PSEUDOEPHEDRINE HCL [Concomitant]
     Indication: PAIN
     Dosage: 500 MG, PRN
     Dates: start: 20050101, end: 20070101
  5. CARISOPRODOL [Concomitant]
     Indication: PAIN
     Dosage: 350 MG, QD
     Dates: start: 20060909
  6. ZYRTEC [Concomitant]
     Indication: MULTIPLE ALLERGIES
     Dosage: 10 MG, PRN

REACTIONS (11)
  - MUSCLE TIGHTNESS [None]
  - POST THROMBOTIC SYNDROME [None]
  - OEDEMA PERIPHERAL [None]
  - PAIN [None]
  - PAIN IN EXTREMITY [None]
  - ANHEDONIA [None]
  - ANXIETY [None]
  - EMOTIONAL DISTRESS [None]
  - SKIN DISCOLOURATION [None]
  - INJURY [None]
  - DEEP VEIN THROMBOSIS [None]
